FAERS Safety Report 6019426-8 (Version None)
Quarter: 2008Q4

REPORT INFORMATION
  Report Type: 
  Country: None (occurrence: None)
  Receive Date: 20081224
  Receipt Date: 20081212
  Transmission Date: 20090506
  Serious: Yes (Other)
  Sender: FDA-Public Use
  Company Number: BR-PFIZER INC-2008157442

PATIENT

DRUGS (6)
  1. FRONTAL [Suspect]
     Indication: CEREBROVASCULAR ACCIDENT
     Dosage: 0.5 MG, 1X/DAY
     Route: 048
     Dates: start: 19880101
  2. FRONTAL [Suspect]
     Indication: DEPRESSION
  3. RIVOTRIL [Concomitant]
     Dosage: 0.5 MG, UNK
     Route: 065
  4. AMLODIPINE [Concomitant]
     Dosage: 2.5 MG, UNK
     Route: 065
  5. ATENOLOL [Concomitant]
     Dosage: 75 MG, UNK
     Route: 065
  6. ENALAPRIL [Concomitant]
     Dosage: 2 MG, UNK
     Route: 065

REACTIONS (22)
  - ABNORMAL BEHAVIOUR [None]
  - BLOOD PRESSURE INADEQUATELY CONTROLLED [None]
  - BONE PAIN [None]
  - CARDIAC DISORDER [None]
  - CHOLELITHIASIS [None]
  - COLD SWEAT [None]
  - CRYING [None]
  - DISTURBANCE IN ATTENTION [None]
  - DRUG INEFFECTIVE [None]
  - DYSPHAGIA [None]
  - FATIGUE [None]
  - FEELING ABNORMAL [None]
  - HAIR TEXTURE ABNORMAL [None]
  - HEADACHE [None]
  - HORMONE LEVEL ABNORMAL [None]
  - HYPERTENSION [None]
  - MEMORY IMPAIRMENT [None]
  - PAIN IN EXTREMITY [None]
  - TACHYCARDIA [None]
  - THYROID DISORDER [None]
  - TREMOR [None]
  - WEIGHT DECREASED [None]
